FAERS Safety Report 8362216-1 (Version None)
Quarter: 2012Q2

REPORT INFORMATION
  Report Type: 
  Country: None (occurrence: None)
  Receive Date: 20120515
  Receipt Date: 20120510
  Transmission Date: 20120825
  Serious: Yes (Other)
  Sender: FDA-Public Use
  Company Number: US-TEVA-337648USA

PATIENT
  Sex: Female
  Weight: 71.55 kg

DRUGS (5)
  1. PEGFILGRASTIM [Concomitant]
     Indication: PROPHYLAXIS
     Dosage: ONCE ON DAY 3
     Route: 058
     Dates: start: 20120506, end: 20120506
  2. GEMCITABINE [Suspect]
     Indication: HODGKIN'S DISEASE
     Dates: start: 20120504
  3. METOPROLOL TARTRATE [Concomitant]
     Indication: TACHYCARDIA
     Dosage: 25 MILLIGRAM;
     Route: 048
  4. METOPROLOL TARTRATE [Concomitant]
     Indication: BLOOD PRESSURE
  5. TREANDA [Suspect]
     Indication: HODGKIN'S DISEASE
     Dosage: ONCE DAILY ON DAYS 1 AND 2
     Route: 042
     Dates: start: 20120504

REACTIONS (1)
  - SINUS TACHYCARDIA [None]
